FAERS Safety Report 8347641-7 (Version None)
Quarter: 2012Q2

REPORT INFORMATION
  Report Type: 
  Country: None (occurrence: None)
  Receive Date: 20120507
  Receipt Date: 20120425
  Transmission Date: 20120825
  Serious: Yes (Hospitalization, Other)
  Sender: FDA-Public Use
  Company Number: 2012SP021993

PATIENT
  Age: 60 Year
  Sex: Male
  Weight: 52 kg

DRUGS (14)
  1. PEG-INTRON [Suspect]
     Indication: HEPATITIS C
     Dosage: 0.75 MCG/KG;QW;SC
     Route: 058
     Dates: start: 20120222
  2. ACETAMINOPHEN [Concomitant]
  3. ALLEGRA [Concomitant]
  4. OLMESARTAN MEDOXOMIL [Concomitant]
  5. REBETOL [Suspect]
     Indication: HEPATITIS C
     Dosage: 600 MG;QD;PO, 400 MG;QD;PO, 200 MG;QD;PO
     Route: 048
     Dates: start: 20120302, end: 20120411
  6. REBETOL [Suspect]
     Indication: HEPATITIS C
     Dosage: 600 MG;QD;PO, 400 MG;QD;PO, 200 MG;QD;PO
     Route: 048
     Dates: start: 20120222, end: 20120301
  7. REBETOL [Suspect]
     Indication: HEPATITIS C
     Dosage: 600 MG;QD;PO, 400 MG;QD;PO, 200 MG;QD;PO
     Route: 048
     Dates: start: 20120412
  8. ALLOPURINOL [Concomitant]
  9. CLARITIN [Concomitant]
  10. TELAVIC (ANTIVIRALS NOS) [Suspect]
     Indication: HEPATITIS C
     Dosage: 2250 MG;QD;PO, 1500 MG;QD;PO
     Route: 048
     Dates: start: 20120222, end: 20120224
  11. TELAVIC (ANTIVIRALS NOS) [Suspect]
     Indication: HEPATITIS C
     Dosage: 2250 MG;QD;PO, 1500 MG;QD;PO
     Route: 048
     Dates: start: 20120225
  12. MYSER [Concomitant]
  13. BERIZYM [Concomitant]
  14. CELESTAMINE TAB [Concomitant]

REACTIONS (11)
  - RENAL DISORDER [None]
  - ECZEMA [None]
  - PLATELET COUNT DECREASED [None]
  - BLOOD CREATININE INCREASED [None]
  - NEUTROPHIL COUNT DECREASED [None]
  - PYREXIA [None]
  - BLOOD UREA INCREASED [None]
  - RASH [None]
  - AMYLASE INCREASED [None]
  - ANAEMIA [None]
  - HYPERURICAEMIA [None]
